FAERS Safety Report 12862982 (Version 1)
Quarter: 2016Q4

REPORT INFORMATION
  Report Type: Spontaneous
  Country: GB (occurrence: GB)
  Receive Date: 20161019
  Receipt Date: 20161019
  Transmission Date: 20170207
  Serious: Yes (Hospitalization)
  Sender: FDA-Public Use
  Company Number: GB-TEVA-702728ACC

PATIENT
  Age: 83 Year
  Sex: Female

DRUGS (17)
  1. WARFARIN [Suspect]
     Active Substance: WARFARIN
     Indication: ATRIAL FIBRILLATION
     Dosage: 5MG MONDAY, WEDNESDAY, FRIDAY. 6MG ALL OTHER DAYS.
     Route: 048
  2. FUROSEMIDE. [Concomitant]
     Active Substance: FUROSEMIDE
  3. METFORMIN [Concomitant]
     Active Substance: METFORMIN HYDROCHLORIDE
  4. LANSOPRAZOLE. [Concomitant]
     Active Substance: LANSOPRAZOLE
  5. TRAMADOL. [Concomitant]
     Active Substance: TRAMADOL
  6. MIRTAZAPINE. [Concomitant]
     Active Substance: MIRTAZAPINE
  7. SIMVASTATIN. [Concomitant]
     Active Substance: SIMVASTATIN
  8. NICORANDIL [Concomitant]
     Active Substance: NICORANDIL
  9. GLYCERYL TRINITRATE [Concomitant]
     Active Substance: NITROGLYCERIN
  10. ISOSORBIDE MONONITRATE. [Concomitant]
     Active Substance: ISOSORBIDE MONONITRATE
  11. DIGOXIN. [Concomitant]
     Active Substance: DIGOXIN
  12. BISOPROLOL [Concomitant]
     Active Substance: BISOPROLOL
  13. FORTISIP [Concomitant]
     Active Substance: CARBOHYDRATES\FATTY ACIDS\MINERALS\PROTEIN\VITAMINS
  14. LOPERAMIDE [Concomitant]
     Active Substance: LOPERAMIDE
  15. PARACETAMOL [Concomitant]
     Active Substance: ACETAMINOPHEN
  16. SPIRONOLACTONE. [Concomitant]
     Active Substance: SPIRONOLACTONE
  17. IBUPROFEN. [Concomitant]
     Active Substance: IBUPROFEN

REACTIONS (5)
  - Oedema peripheral [Unknown]
  - Malaise [Unknown]
  - Dysuria [Unknown]
  - Urine odour abnormal [Unknown]
  - International normalised ratio increased [Recovered/Resolved]

NARRATIVE: CASE EVENT DATE: 20160723
